FAERS Safety Report 16963328 (Version 11)
Quarter: 2021Q1

REPORT INFORMATION
  Report Type: Spontaneous
  Country: DE (occurrence: DE)
  Receive Date: 20191025
  Receipt Date: 20210211
  Transmission Date: 20210419
  Serious: Yes (Death, Life-Threatening, Hospitalization, Other)
  Sender: FDA-Public Use
  Company Number: NVSC2019DE016384

PATIENT
  Age: 60 Year
  Sex: Male

DRUGS (22)
  1. VELCADE [Suspect]
     Active Substance: BORTEZOMIB
     Indication: ENCEPHALITIS
     Dosage: UNK, INJECTION
     Route: 065
  2. RITUXIMAB. [Suspect]
     Active Substance: RITUXIMAB
     Indication: PLASMA CELL MYELOMA
  3. METHYLPREDNISOLONE. [Suspect]
     Active Substance: METHYLPREDNISOLONE
     Indication: IMMUNOSUPPRESSION
  4. BORTEZOMIB. [Suspect]
     Active Substance: BORTEZOMIB
     Indication: ENCEPHALITIS
     Dosage: 11.3 MG/M2 (3 CYCLES OF BORTEZOMIB 11.3 MG/M2)
     Route: 065
  5. DARZALEX [Suspect]
     Active Substance: DARATUMUMAB
     Indication: PLASMA CELL MYELOMA
     Dosage: 16 MG/KG, Q2W (9?13 CYCLES)
     Route: 042
  6. DARATUMUMAB [Suspect]
     Active Substance: DARATUMUMAB
     Dosage: 16 MG/KG INFUSION, FOR A TOTAL OF 13 CYCLES
     Route: 042
  7. COTRIMOXAZOLE [Concomitant]
     Active Substance: SULFAMETHOXAZOLE\TRIMETHOPRIM
     Indication: INFECTION PROPHYLAXIS
     Dosage: 960 MG, Q3W THREE TIMES A WEEK
     Route: 065
  8. PREDNISOLONE. [Suspect]
     Active Substance: PREDNISOLONE
     Indication: ENCEPHALITIS
     Dosage: RECEIVED FOR 2 AND HALF YEARS
     Route: 048
  9. VELCADE [Suspect]
     Active Substance: BORTEZOMIB
     Indication: ENCEPHALITIS AUTOIMMUNE
     Dosage: 1.3 MG/M2 (1?1.3 MG/M2)
     Route: 065
  10. DARZALEX [Suspect]
     Active Substance: DARATUMUMAB
     Indication: ENCEPHALITIS
  11. ACICLOVIR [Concomitant]
     Active Substance: ACYCLOVIR
     Indication: INFECTION PROPHYLAXIS
     Dosage: 200 MG, QD
     Route: 065
  12. RITUXIMAB. [Suspect]
     Active Substance: RITUXIMAB
     Indication: ENCEPHALITIS
  13. METHYLPREDNISOLONE. [Suspect]
     Active Substance: METHYLPREDNISOLONE
     Indication: ENCEPHALITIS
     Dosage: 5X500MG
     Route: 065
  14. PREDNISOLONE. [Suspect]
     Active Substance: PREDNISOLONE
     Indication: ENCEPHALITIS AUTOIMMUNE
     Dosage: 5 MG, QD, TAPERING?REGIMEN/5 MG, TAPERING FASHION
     Route: 048
  15. BORTEZOMIB. [Suspect]
     Active Substance: BORTEZOMIB
     Indication: ENCEPHALITIS AUTOIMMUNE
     Dosage: 1?1.3 MG/M2
     Route: 065
  16. BORTEZOMIB. [Suspect]
     Active Substance: BORTEZOMIB
     Indication: IMMUNOSUPPRESSION
     Dosage: 11.3 MG/M2 (THREE CYCLES AT A DOSE OF 1?1.3 MG/M2)
     Route: 065
  17. DARATUMUMAB [Suspect]
     Active Substance: DARATUMUMAB
     Indication: ENCEPHALITIS
     Dosage: 16 MG/KG, QW 8 CYCLES
     Route: 041
  18. RITUXIMAB. [Suspect]
     Active Substance: RITUXIMAB
     Indication: ENCEPHALITIS AUTOIMMUNE
     Dosage: 1 G
     Route: 065
  19. METHYLPREDNISOLONE. [Suspect]
     Active Substance: METHYLPREDNISOLONE
     Indication: ENCEPHALITIS AUTOIMMUNE
     Dosage: 5X1 G
     Route: 065
  20. DARZALEX [Suspect]
     Active Substance: DARATUMUMAB
     Indication: ENCEPHALITIS AUTOIMMUNE
     Dosage: 16 MG/KG QW(1?8 CYCLES)
     Route: 042
  21. DARATUMUMAB [Suspect]
     Active Substance: DARATUMUMAB
     Indication: ENCEPHALITIS AUTOIMMUNE
     Dosage: 16 MG/KG INFUSION, FOR A TOTAL OF 9?13 CYCLES
     Route: 042
  22. DARATUMUMAB [Suspect]
     Active Substance: DARATUMUMAB
     Indication: IMMUNOSUPPRESSION
     Dosage: 16 MG/KG, Q2W (REMAINING FIVE CYCLES)
     Route: 041

REACTIONS (22)
  - Off label use [Fatal]
  - Product use in unapproved indication [Fatal]
  - Bacterial sepsis [Fatal]
  - Cognitive disorder [Fatal]
  - Encephalitis autoimmune [Fatal]
  - Bacterial infection [Fatal]
  - Therapeutic response unexpected [Fatal]
  - Septic shock [Fatal]
  - Drug ineffective [Fatal]
  - Aggression [Unknown]
  - Therapy non-responder [Unknown]
  - Urinary tract infection [Fatal]
  - Infection [Fatal]
  - Hand fracture [Fatal]
  - Cerebellar ataxia [Recovering/Resolving]
  - Neuromyotonia [Fatal]
  - Seizure [Recovering/Resolving]
  - Cellulitis [Fatal]
  - Condition aggravated [Fatal]
  - Breathing-related sleep disorder [Fatal]
  - Rebound effect [Recovering/Resolving]
  - Encephalitis [Fatal]

NARRATIVE: CASE EVENT DATE: 2017
